FAERS Safety Report 4651906-X (Version None)
Quarter: 2005Q2

REPORT INFORMATION
  Report Type: 
  Country: None (occurrence: None)
  Receive Date: 20050504
  Receipt Date: 20050131
  Transmission Date: 20051028
  Serious: Yes (Disabling, Other)
  Sender: FDA-Public Use
  Company Number: PHNR2005AU00495

PATIENT
  Age: 42 Year
  Sex: Female

DRUGS (11)
  1. ZOMETA [Suspect]
     Indication: METASTASES TO BONE
     Dosage: 4 MG, EVERY 3-4 WEEKS
     Dates: start: 20040605, end: 20041205
  2. ONDANSETRON [Concomitant]
  3. VENLAFAXINE HCL [Concomitant]
  4. OXYCONTIN [Concomitant]
  5. CELECOXIB [Concomitant]
  6. ACETAMINOPHEN [Concomitant]
  7. PYROXIN [Concomitant]
  8. RANITIDINE [Concomitant]
  9. CAPECITABINE [Concomitant]
     Dates: start: 20040601, end: 20041201
  10. DOCUSATE SODIUM W/SENNA [Concomitant]
  11. TEMAZEPAM [Concomitant]

REACTIONS (11)
  - BONE DISORDER [None]
  - DYSAESTHESIA [None]
  - HYPOAESTHESIA ORAL [None]
  - JAW DISORDER [None]
  - MALIGNANT NEOPLASM PROGRESSION [None]
  - OSTEONECROSIS [None]
  - PAIN IN JAW [None]
  - RADIATION INJURY [None]
  - SOFT TISSUE INFLAMMATION [None]
  - TOOTH ABSCESS [None]
  - TOOTH LOSS [None]
